FAERS Safety Report 19695319 (Version 2)
Quarter: 2021Q3

REPORT INFORMATION
  Report Type: Spontaneous
  Country: AU (occurrence: AU)
  Receive Date: 20210813
  Receipt Date: 20210817
  Transmission Date: 20211014
  Serious: Yes (Life-Threatening, Hospitalization)
  Sender: FDA-Public Use
  Company Number: NVSC2021AU182149

PATIENT
  Age: 11 Year
  Sex: Female
  Weight: 47 kg

DRUGS (1)
  1. TRAMETINIB [Suspect]
     Active Substance: TRAMETINIB
     Indication: ASTROCYTOMA, LOW GRADE
     Dosage: 1MG/1MG/0.5MG, QD
     Route: 048
     Dates: start: 20210120, end: 20210711

REACTIONS (3)
  - Product use in unapproved indication [Unknown]
  - Haemorrhage intracranial [Recovered/Resolved]
  - Product use issue [Unknown]

NARRATIVE: CASE EVENT DATE: 20210710
